FAERS Safety Report 20203858 (Version 2)
Quarter: 2022Q1

REPORT INFORMATION
  Report Type: Spontaneous
  Country: US (occurrence: US)
  Receive Date: 20211219
  Receipt Date: 20220329
  Transmission Date: 20220423
  Serious: No
  Sender: FDA-Public Use
  Company Number: US-BIOVITRUM-2021US12103

PATIENT
  Sex: Female

DRUGS (5)
  1. SYNAGIS [Suspect]
     Active Substance: PALIVIZUMAB
     Indication: Premature baby
     Route: 030
     Dates: start: 202111
  2. SYNAGIS [Suspect]
     Active Substance: PALIVIZUMAB
     Indication: Low birth weight baby
  3. PULMICORT TURBUHALER [Concomitant]
     Active Substance: BUDESONIDE
  4. ALBUTEROL SULFATE [Concomitant]
     Active Substance: ALBUTEROL SULFATE
  5. FLUARIX QUAD [Concomitant]

REACTIONS (4)
  - Cough [Unknown]
  - Nasopharyngitis [Unknown]
  - Illness [Unknown]
  - Conjunctivitis [Unknown]
